FAERS Safety Report 12293620 (Version 1)
Quarter: 2016Q2

REPORT INFORMATION
  Report Type: Report from Study
  Country: DE (occurrence: CL)
  Receive Date: 20160421
  Receipt Date: 20160421
  Transmission Date: 20160815
  Serious: Yes (Other)
  Sender: FDA-Public Use
  Company Number: DE-ACTELION-A-US2016-135006

PATIENT
  Age: 42 Year
  Sex: Female

DRUGS (9)
  1. SERTRALINE [Concomitant]
     Active Substance: SERTRALINE HYDROCHLORIDE
     Dosage: 50 MG, QD
  2. SPIRONOLACTONE. [Concomitant]
     Active Substance: SPIRONOLACTONE
     Dosage: 25 MG, Q8HRS
  3. POTASSIUM CHLORIDE. [Concomitant]
     Active Substance: POTASSIUM CHLORIDE
     Dosage: 600 MG, QD
  4. NEO-SINTROM [Concomitant]
     Active Substance: ACENOCOUMAROL
     Dosage: UNK
  5. FUROSEMIDE. [Concomitant]
     Active Substance: FUROSEMIDE
     Dosage: 40 MG, Q12HRS
  6. SILDENAFIL. [Concomitant]
     Active Substance: SILDENAFIL
     Dosage: 50 MG, Q8HRS
  7. OXYGEN. [Concomitant]
     Active Substance: OXYGEN
     Dosage: UNK, ONCE A NIGHT AND WHEN REQUIRED
  8. CLONAZEPAM. [Concomitant]
     Active Substance: CLONAZEPAM
     Dosage: 0.5 MG, QPM
  9. VENTAVIS [Suspect]
     Active Substance: ILOPROST
     Indication: PULMONARY HYPERTENSION
     Dosage: UNK, 8/D
     Route: 055
     Dates: start: 20140516

REACTIONS (7)
  - Swelling [Unknown]
  - Skin fissures [Unknown]
  - Varicose ulceration [Unknown]
  - Pyrexia [Unknown]
  - Dyspnoea [Unknown]
  - Oedema peripheral [Unknown]
  - Pain of skin [Unknown]

NARRATIVE: CASE EVENT DATE: 20160406
